FAERS Safety Report 7067731-9 (Version None)
Quarter: 2010Q4

REPORT INFORMATION
  Report Type: 
  Country: None (occurrence: None)
  Receive Date: 20101028
  Receipt Date: 20101019
  Transmission Date: 20110411
  Serious: Yes (Other)
  Sender: FDA-Public Use
  Company Number: FR-NOVOPROD-315430

PATIENT
  Age: 85 Year
  Sex: Male

DRUGS (11)
  1. NOVONORM [Suspect]
     Indication: TYPE 1 DIABETES MELLITUS
     Dosage: 4 MG, TID
     Route: 048
  2. ESTRACYT                           /00327002/ [Concomitant]
     Indication: PROSTATE CANCER
     Dosage: 140 MG, QD
     Route: 048
     Dates: start: 20100101
  3. CAPTOPRIL [Concomitant]
     Dosage: 50 MG, TID
     Route: 048
     Dates: end: 20100601
  4. GABAPENTINE [Concomitant]
     Dosage: 100 MG, TID
     Route: 048
  5. TAHOR [Concomitant]
     Dosage: 80 MG, QD
     Route: 048
  6. INDAPAMIDE [Concomitant]
     Indication: HYPERTENSION
     Dosage: 1.5 MG, QD
     Route: 048
  7. AERIUS                             /01009701/ [Concomitant]
     Dosage: 5 MG, QD
     Route: 048
  8. GLUCOR [Concomitant]
     Indication: DIABETES MELLITUS
     Dosage: 50 MG, TID
     Route: 048
  9. DILTIAZEM [Concomitant]
     Dosage: 300 MG, QD
     Route: 048
  10. ALLOPURINOL [Concomitant]
     Dosage: 200 MG, QD
     Route: 048
  11. LANTUS [Suspect]
     Indication: DIABETES MELLITUS
     Dosage: 18 U, QD
     Route: 058

REACTIONS (1)
  - FACE OEDEMA [None]
